FAERS Safety Report 5142668-0 (Version None)
Quarter: 2006Q4

REPORT INFORMATION
  Report Type: 
  Country: None (occurrence: None)
  Receive Date: 20061102
  Receipt Date: 20060905
  Transmission Date: 20070319
  Serious: Yes (Hospitalization)
  Sender: FDA-Public Use
  Company Number: US-ELI_LILLY_AND_COMPANY-US200609001804

PATIENT
  Sex: Female

DRUGS (10)
  1. CYMBALTA [Suspect]
     Dosage: 60 MG, DAILY (1/D)
     Dates: start: 20060327, end: 20060406
  2. NEURONTIN [Concomitant]
     Dosage: 300 MG, 2/D
  3. REGLAN                                  /USA/ [Concomitant]
     Dosage: UNK, EVERY 6 HRS
  4. XANAX                                   /USA/ [Concomitant]
  5. MS CONTIN [Concomitant]
  6. SOMA [Concomitant]
  7. ULTRAM [Concomitant]
  8. LITHIUM CARBONATE [Concomitant]
  9. VICODIN [Concomitant]
  10. EFFEXOR [Concomitant]

REACTIONS (3)
  - ALANINE AMINOTRANSFERASE INCREASED [None]
  - ASPARTATE AMINOTRANSFERASE INCREASED [None]
  - SUICIDAL BEHAVIOUR [None]
